FAERS Safety Report 7929671-X (Version None)
Quarter: 2011Q4

REPORT INFORMATION
  Report Type: 
  Country: None (occurrence: None)
  Receive Date: 20111121
  Receipt Date: 20111115
  Transmission Date: 20120403
  Serious: Yes (Hospitalization, Congenital Anomaly, Other)
  Sender: FDA-Public Use
  Company Number: US-PFIZER INC-2011077307

PATIENT
  Sex: Male

DRUGS (36)
  1. ZOLOFT [Suspect]
     Dosage: 200 MG, 1X/DAY
     Route: 064
     Dates: start: 20011127
  2. BENADRYL [Concomitant]
     Dosage: 25 MG, EVERY 4 HRS
     Route: 064
  3. CEFTIN [Concomitant]
     Dosage: 250 MG, 2X/DAY WITH FOOD
     Route: 064
  4. ACETAMINOPHEN AND HYDROCODONE BITARTRATE [Concomitant]
     Dosage: 5/500
     Route: 064
     Dates: start: 20020114
  5. BENADRYL [Concomitant]
     Dosage: UNK
     Route: 064
     Dates: start: 20020724
  6. CEFTIN [Concomitant]
     Dosage: UNK
     Route: 064
     Dates: start: 20020628
  7. FLOVENT [Concomitant]
     Indication: ASTHMA
     Dosage: 110 UG, UNK
     Route: 064
     Dates: start: 20020114
  8. COLACE [Concomitant]
     Dosage: 100 MG, UNK
     Route: 064
  9. ATROVENT [Concomitant]
     Dosage: UNK
     Route: 064
     Dates: start: 20020702
  10. ZOLOFT [Suspect]
     Dosage: 50 MG, UNK
     Route: 064
  11. HYDROCODONE [Concomitant]
     Indication: ARTHRITIS
     Dosage: 5/500 TWICE A DAY FOR ONE MONTH
     Route: 064
  12. SOLU-MEDROL [Concomitant]
     Dosage: 125 MG, EVERY 6 HOURS, EVERY 8 HOURS
     Route: 064
  13. ALBUTEROL [Concomitant]
     Dosage: UNIT DOSE HAND HELD NEBULIZER EVERY 4 HOURS WHILE AWAKE
     Route: 064
  14. ATROVENT [Concomitant]
     Dosage: UNIT DOSE HAND HELD NEBULIZER EVERY 4 HOURS
     Route: 064
  15. VANCERIL [Concomitant]
     Dosage: UNK
     Route: 064
     Dates: start: 20020305
  16. METHYLPREDNISOLONE ACETATE [Concomitant]
     Dosage: 4 MG, UNK
     Route: 064
     Dates: start: 20020626
  17. FLEXERIL [Concomitant]
     Dosage: 10 MG, UNK
     Route: 064
  18. SEROQUEL [Concomitant]
     Indication: HALLUCINATION
     Dosage: 100 MG, 1X/DAY, AT BED TIME
     Route: 064
  19. REVIA [Concomitant]
     Dosage: 25 MG, 2X/DAY
     Route: 064
     Dates: start: 20011030, end: 20020108
  20. NICODERM [Concomitant]
     Dosage: 21 MG PER HOUR PATCH, ONE PATCH ONE DAY
     Route: 064
  21. ALBUTEROL [Concomitant]
     Dosage: 90 UG, UNK
     Route: 064
     Dates: start: 20020201
  22. BIAXIN XL [Concomitant]
     Dosage: 500 MG, UNK
     Route: 064
     Dates: start: 20020119
  23. SEREVENT [Concomitant]
     Dosage: 21 UG, UNK
     Route: 064
     Dates: start: 20020201
  24. MONTELUKAST [Concomitant]
     Dosage: 10 MG, UNK
     Route: 064
     Dates: start: 20020422
  25. ADVAIR DISKUS 100/50 [Concomitant]
     Dosage: 5/500
     Route: 064
     Dates: start: 20020701
  26. COMBIVENT [Concomitant]
     Dosage: UNK
     Route: 064
     Dates: start: 20020201
  27. ZITHROMAX [Concomitant]
     Route: 064
  28. AEROBID [Concomitant]
     Dosage: UNK
     Route: 064
     Dates: start: 20020111
  29. AMOXICILLIN [Concomitant]
     Dosage: 500 MG, UNK
     Route: 064
     Dates: start: 20020309
  30. PREDNISONE [Concomitant]
     Dosage: 10 MG, UNK
     Route: 064
     Dates: start: 20020119
  31. ZOLOFT [Suspect]
     Indication: DEPRESSION
     Dosage: 100 MG ONCE AT BED TIME
     Route: 064
  32. SEROQUEL [Concomitant]
     Dosage: 300 MG, UNK
     Route: 064
     Dates: start: 20020201
  33. MULTI-VITAMINS [Concomitant]
     Dosage: ONCE A DAY
     Route: 064
  34. MULTI-VITAMINS [Concomitant]
     Dosage: UNK
     Route: 064
     Dates: start: 20020328
  35. HYDROXYZINE [Concomitant]
     Dosage: 25 MG, UNK
     Route: 064
     Dates: start: 20020407
  36. NICOTINE [Concomitant]
     Dosage: 14 MG FOR 24 HOUR, UNK
     Route: 064
     Dates: start: 20020424

REACTIONS (7)
  - MATERNAL EXPOSURE TIMING UNSPECIFIED [None]
  - APPLICATION SITE RASH [None]
  - BLISTER [None]
  - CONVULSION NEONATAL [None]
  - FOETAL EXPOSURE DURING PREGNANCY [None]
  - TALIPES [None]
  - PARONYCHIA [None]
